FAERS Safety Report 6766990-7 (Version None)
Quarter: 2010Q2

REPORT INFORMATION
  Report Type: 
  Country: None (occurrence: None)
  Receive Date: 20100611
  Receipt Date: 20100602
  Transmission Date: 20101027
  Serious: Yes (Hospitalization)
  Sender: FDA-Public Use
  Company Number: DE-AMGEN-QUU413330

PATIENT
  Age: 74 Year
  Sex: Female

DRUGS (4)
  1. ENBREL [Suspect]
     Indication: RHEUMATOID ARTHRITIS
     Route: 058
     Dates: start: 20081101, end: 20100401
  2. ENBREL [Suspect]
     Route: 058
     Dates: start: 20100501
  3. IBUPROFEN [Concomitant]
     Dosage: UNKNOWN DOSE AS NEEDED
  4. URBASON [Concomitant]
     Dosage: 4 MG (FREQUENCY UNKNOWN)

REACTIONS (2)
  - ILEUS [None]
  - SUBILEUS [None]
